FAERS Safety Report 6822379-3 (Version None)
Quarter: 2010Q3

REPORT INFORMATION
  Report Type: 
  Country: None (occurrence: None)
  Receive Date: 20100708
  Receipt Date: 20100625
  Transmission Date: 20110219
  Serious: Yes (Hospitalization, Other)
  Sender: FDA-Public Use
  Company Number: PHHY2010GB03506

PATIENT
  Sex: Male

DRUGS (1)
  1. CLOZARIL [Suspect]
     Indication: SCHIZOPHRENIA
     Dosage: UNK
     Dates: start: 19990217

REACTIONS (5)
  - GASTROINTESTINAL TUBE INSERTION [None]
  - SOMNOLENCE [None]
  - SURGERY [None]
  - TONGUE NEOPLASM MALIGNANT STAGE UNSPECIFIED [None]
  - WEIGHT DECREASED [None]
